FAERS Safety Report 11450242 (Version 1)
Quarter: 2015Q3

REPORT INFORMATION
  Report Type: Spontaneous
  Country: US (occurrence: None)
  Receive Date: 20150902
  Receipt Date: 20150902
  Transmission Date: 20151125
  Serious: No
  Sender: FDA-Public Use
  Company Number: None

PATIENT
  Age: 51 Year
  Sex: Male

DRUGS (1)
  1. HUMIRA [Suspect]
     Active Substance: ADALIMUMAB
     Indication: ANKYLOSING SPONDYLITIS
     Dosage: ROUTE: SUBCUTANEOUS 057  DOSE FORM: INJECTABLE  ?FREQUENCY: 40 MG EVERY 14 DAYS
     Route: 058
     Dates: start: 20150812

REACTIONS (5)
  - Cough [None]
  - Pain [None]
  - Hypoaesthesia [None]
  - Retching [None]
  - Fatigue [None]

NARRATIVE: CASE EVENT DATE: 20150812
